FAERS Safety Report 13532835 (Version 1)
Quarter: 2017Q2

REPORT INFORMATION
  Report Type: Spontaneous
  Country: US (occurrence: US)
  Receive Date: 20170510
  Receipt Date: 20170510
  Transmission Date: 20170830
  Serious: Yes (Other)
  Sender: FDA-Public Use
  Company Number: US-BAYER-2017-088002

PATIENT
  Age: 25 Year
  Sex: Female

DRUGS (1)
  1. MIRENA [Suspect]
     Active Substance: LEVONORGESTREL
     Dosage: 20 MCG/24HR, CONT
     Route: 015
     Dates: start: 20140211, end: 20150504

REACTIONS (6)
  - Device breakage [None]
  - Embedded device [None]
  - Genital haemorrhage [None]
  - Device dislocation [None]
  - Abdominal pain lower [None]
  - Device difficult to use [None]

NARRATIVE: CASE EVENT DATE: 20140624
